FAERS Safety Report 22379535 (Version 1)
Quarter: 2023Q2

REPORT INFORMATION
  Report Type: Spontaneous
  Country: CA (occurrence: CA)
  Receive Date: 20230529
  Receipt Date: 20230529
  Transmission Date: 20230721
  Serious: Yes (Hospitalization, Other)
  Sender: FDA-Public Use
  Company Number: CA-PFIZER INC-PV202300092899

PATIENT
  Age: 43 Year
  Sex: Female

DRUGS (1)
  1. METHOTREXATE SODIUM [Suspect]
     Active Substance: METHOTREXATE SODIUM
     Dosage: 20 MG, WEEKLY X YEARS

REACTIONS (7)
  - Respiratory symptom [Unknown]
  - Immunoglobulin G4 related disease [Unknown]
  - Dyspnoea [Unknown]
  - Soft tissue mass [Unknown]
  - Granuloma [Unknown]
  - Dysphonia [Unknown]
  - Drug ineffective [Unknown]
